FAERS Safety Report 6447596-6 (Version None)
Quarter: 2009Q4

REPORT INFORMATION
  Report Type: 
  Country: None (occurrence: None)
  Receive Date: 20091119
  Receipt Date: 20090324
  Transmission Date: 20100525
  Serious: Yes (Other)
  Sender: FDA-Public Use
  Company Number: US-AMGEN-QUU277703

PATIENT
  Sex: Female

DRUGS (11)
  1. ENBREL [Suspect]
     Indication: PSORIASIS
     Route: 058
     Dates: start: 20080424, end: 20080601
  2. CLOBETASOL PROPIONATE [Concomitant]
  3. DESONIDE [Concomitant]
  4. LOVASTATIN [Concomitant]
  5. PREMARIN [Concomitant]
  6. REQUIP [Concomitant]
  7. RANITIDINE [Concomitant]
  8. SEROQUEL [Concomitant]
  9. THYROID TAB [Concomitant]
  10. KLONOPIN [Concomitant]
  11. UNSPECIFIED MEDICATION [Concomitant]

REACTIONS (24)
  - ABDOMINAL PAIN [None]
  - CATARACT OPERATION [None]
  - CHEST DISCOMFORT [None]
  - DEPRESSION [None]
  - DRUG INEFFECTIVE [None]
  - DYSPNOEA [None]
  - FATIGUE [None]
  - FOOD CRAVING [None]
  - HEADACHE [None]
  - HERNIA [None]
  - HYPERSENSITIVITY [None]
  - INFLUENZA [None]
  - INJECTION SITE IRRITATION [None]
  - INJECTION SITE PAIN [None]
  - LUNG NEOPLASM [None]
  - LYMPHADENOPATHY [None]
  - MELANOCYTIC NAEVUS [None]
  - NAUSEA [None]
  - PSORIASIS [None]
  - RASH MACULAR [None]
  - RASH PAPULAR [None]
  - STRESS [None]
  - UPPER RESPIRATORY TRACT INFECTION [None]
  - WEIGHT INCREASED [None]
